FAERS Safety Report 25840354 (Version 1)
Quarter: 2025Q3

REPORT INFORMATION
  Report Type: Spontaneous
  Country: AU (occurrence: AU)
  Receive Date: 20250924
  Receipt Date: 20250924
  Transmission Date: 20251020
  Serious: Yes (Hospitalization)
  Sender: CIPLA
  Company Number: AU-CIPLA (EU) LIMITED-2025AU11922

PATIENT

DRUGS (1)
  1. FINASTERIDE [Suspect]
     Active Substance: FINASTERIDE
     Indication: Alopecia
     Route: 048
     Dates: start: 20240801, end: 20250322

REACTIONS (13)
  - Head discomfort [Recovering/Resolving]
  - Headache [Recovered/Resolved]
  - Muscle twitching [Recovering/Resolving]
  - Myoclonus [Recovering/Resolving]
  - Restless legs syndrome [Recovering/Resolving]
  - Tremor [Recovered/Resolved]
  - Alopecia areata [Recovered/Resolved]
  - Brain fog [Recovering/Resolving]
  - Dizziness [Recovered/Resolved]
  - Emotional distress [Unknown]
  - Lymphadenopathy [Recovered/Resolved]
  - Malaise [Recovered/Resolved]
  - Occipital neuralgia [Recovered/Resolved]

NARRATIVE: CASE EVENT DATE: 20240811
